FAERS Safety Report 15088701 (Version 2)
Quarter: 2018Q3

REPORT INFORMATION
  Report Type: Spontaneous
  Country: US (occurrence: US)
  Receive Date: 20180629
  Receipt Date: 20180827
  Transmission Date: 20181010
  Serious: Yes (Other)
  Sender: FDA-Public Use
  Company Number: US-PFIZER INC-2018262407

PATIENT
  Age: 68 Year
  Sex: Male

DRUGS (1)
  1. XELJANZ XR [Suspect]
     Active Substance: TOFACITINIB CITRATE
     Dosage: 11 MG, ONCE DAILY
     Dates: start: 20180420, end: 2018

REACTIONS (4)
  - Feeling abnormal [Recovered/Resolved]
  - Condition aggravated [Unknown]
  - Tooth abscess [Unknown]
  - Dizziness [Recovered/Resolved]
